FAERS Safety Report 8381937-8 (Version None)
Quarter: 2012Q2

REPORT INFORMATION
  Report Type: 
  Country: None (occurrence: None)
  Receive Date: 20120522
  Receipt Date: 20120522
  Transmission Date: 20120825
  Serious: Yes (Other)
  Sender: FDA-Public Use
  Company Number: None

PATIENT
  Age: 44 Year
  Sex: Male
  Weight: 72.5755 kg

DRUGS (2)
  1. ZYRTEC [Suspect]
     Indication: HYPERSENSITIVITY
     Dosage: 10 MG PRN PO
     Route: 048
     Dates: start: 20120518, end: 20120518
  2. ZINC 50 MG TARGET CORPORATION -ORIGIN- [Suspect]
     Indication: IMMUNE SYSTEM DISORDER
     Dosage: 50 MG PRN PO
     Route: 048
     Dates: start: 20120518, end: 20120518

REACTIONS (5)
  - SOMNOLENCE [None]
  - DIARRHOEA [None]
  - DRUG INTERACTION [None]
  - ABDOMINAL PAIN UPPER [None]
  - NAUSEA [None]
